FAERS Safety Report 9284636 (Version 2)
Quarter: 2013Q3

REPORT INFORMATION
  Report Type: Spontaneous
  Country: US (occurrence: US)
  Receive Date: 20130513
  Receipt Date: 20130729
  Transmission Date: 20140515
  Serious: Yes (Other)
  Sender: FDA-Public Use
  Company Number: US-AMGEN-USASP2013032477

PATIENT
  Age: 71 Year
  Sex: Female
  Weight: 70.76 kg

DRUGS (4)
  1. PROLIA [Suspect]
     Indication: OSTEOPOROSIS
     Dosage: UNK
     Route: 065
  2. LYRICA [Suspect]
     Indication: BACK PAIN
     Dosage: 125 MG, BID
     Route: 065
     Dates: start: 2010
  3. METOPROLOL TARTRATE [Concomitant]
     Indication: CARDIAC DISORDER
     Dosage: UNK UNK, BID
  4. SIMVASTATIN [Concomitant]
     Dosage: 40 MG, QD

REACTIONS (5)
  - Breast cancer [Unknown]
  - Malaise [Unknown]
  - Tooth loss [Unknown]
  - Jaw disorder [Unknown]
  - Tooth disorder [Unknown]
